FAERS Safety Report 7797101-7 (Version None)
Quarter: 2011Q4

REPORT INFORMATION
  Report Type: 
  Country: None (occurrence: None)
  Receive Date: 20111005
  Receipt Date: 20110923
  Transmission Date: 20120403
  Serious: Yes (Hospitalization)
  Sender: FDA-Public Use
  Company Number: FR-SANOFI-AVENTIS-2011SA062267

PATIENT
  Age: 63 Year
  Sex: Female

DRUGS (9)
  1. ALDACTONE [Concomitant]
     Route: 048
     Dates: end: 20110823
  2. PYOSTACINE [Suspect]
     Indication: PROPHYLAXIS
     Route: 048
     Dates: start: 20110715, end: 20110822
  3. BISOPROLOL FUMARATE [Concomitant]
     Route: 048
     Dates: end: 20110823
  4. CLINDAMYCIN [Concomitant]
     Indication: PROPHYLAXIS
     Route: 048
     Dates: start: 20110615, end: 20110715
  5. RIFADIN [Suspect]
     Indication: PROPHYLAXIS
     Route: 048
     Dates: start: 20110715, end: 20110801
  6. POTASSIUM CHLORIDE [Concomitant]
     Route: 048
  7. AMIODARONE HCL [Concomitant]
     Dosage: 5 DAYS PER WEEK
     Route: 048
     Dates: end: 20110823
  8. ESOMEPRAZOLE SODIUM [Concomitant]
     Route: 048
  9. LEVOTHYROXINE SODIUM [Concomitant]
     Route: 048

REACTIONS (5)
  - CHOLESTASIS [None]
  - JAUNDICE [None]
  - ARTHRITIS BACTERIAL [None]
  - BLOOD ALKALINE PHOSPHATASE INCREASED [None]
  - HYPERBILIRUBINAEMIA [None]
